FAERS Safety Report 22186915 (Version 2)
Quarter: 2023Q2

REPORT INFORMATION
  Report Type: Report from Study
  Country: CA (occurrence: None)
  Receive Date: 20230407
  Receipt Date: 20230413
  Transmission Date: 20230721
  Serious: Yes (Hospitalization)
  Sender: FDA-Public Use
  Company Number: 2023A077123

PATIENT
  Age: 49 Year
  Sex: Female

DRUGS (5)
  1. DURVALUMAB [Suspect]
     Active Substance: DURVALUMAB
     Indication: Pancreatic carcinoma
     Dosage: 1500MG DAY 1 Q28 DAYS
     Route: 042
     Dates: start: 20230119
  2. BA-3011 [Suspect]
     Active Substance: BA-3011
     Indication: Pancreatic carcinoma
     Dosage: 94 MG (DAYS 1+15 Q28 DAYS)
     Route: 042
     Dates: start: 20230119
  3. AMLODIPINE [Concomitant]
     Active Substance: AMLODIPINE BESYLATE
     Dates: start: 20230118
  4. ADVIL [Concomitant]
     Active Substance: IBUPROFEN
     Dates: start: 202209
  5. ENOXAPARIN [Concomitant]
     Active Substance: ENOXAPARIN
     Dates: start: 20230328

REACTIONS (1)
  - Pleural effusion [Unknown]

NARRATIVE: CASE EVENT DATE: 20230328
